FAERS Safety Report 7609853 (Version 10)
Quarter: 2012Q4

REPORT INFORMATION
  Report Type: 
  Country: JP (occurrence: JP)
  Receive Date: 20100928
  Receipt Date: 20121126
  Transmission Date: 20130627
  Serious: Yes (Other)
  Sender: FDA-Public Use
  Company Number: PHHY2010JP41962

PATIENT
  Sex: Female
  Weight: 50 kg

DRUGS (45)
  1. CLOZAPINE [Suspect]
     Indication: SCHIZOPHRENIA
     Dosage: 12.5 mg, QD
     Route: 048
     Dates: start: 20100301
  2. CLOZAPINE [Suspect]
     Dosage: 12.5 mg, QD
     Dates: start: 20110304
  3. CLOZAPINE [Suspect]
     Dosage: 25 mg, QD
     Route: 048
     Dates: start: 20100302
  4. CLOZAPINE [Suspect]
     Dosage: 50 mg, QD
     Route: 048
     Dates: start: 20100305
  5. CLOZAPINE [Suspect]
     Dosage: 75 mg, QD
     Route: 048
     Dates: start: 20100308
  6. CLOZAPINE [Suspect]
     Dosage: 100 mg, QD
     Route: 048
     Dates: start: 20100310
  7. CLOZAPINE [Suspect]
     Dosage: 125 mg, QD
     Route: 048
     Dates: start: 20100312
  8. CLOZAPINE [Suspect]
     Dosage: 150 mg, QD
     Route: 048
     Dates: start: 20100315
  9. CLOZAPINE [Suspect]
     Dosage: 175 mg, QD
     Route: 048
     Dates: start: 20100323
  10. CLOZAPINE [Suspect]
     Dosage: 200 mg, QD
     Route: 048
     Dates: start: 20100329
  11. CLOZAPINE [Suspect]
     Dosage: 225 mg, QD
     Route: 048
     Dates: start: 20100402
  12. CLOZAPINE [Suspect]
     Dosage: 250 mg, QD
     Route: 048
     Dates: start: 20100405
  13. CLOZAPINE [Suspect]
     Dosage: 275 mg, QD
     Route: 048
     Dates: start: 20100407
  14. CLOZAPINE [Suspect]
     Dosage: 300 mg, QD
     Route: 048
     Dates: start: 20100409
  15. CLOZAPINE [Suspect]
     Dosage: 350 mg, QD
     Route: 047
     Dates: start: 20100412
  16. CLOZAPINE [Suspect]
     Dosage: 400 mg, QD
     Route: 047
     Dates: start: 20100414
  17. CLOZAPINE [Suspect]
     Dosage: 450 mg, QD
     Route: 048
     Dates: start: 20100416
  18. CLOZAPINE [Suspect]
     Dosage: 500 mg, QD
     Route: 048
     Dates: start: 20100419
  19. CLOZAPINE [Suspect]
     Dosage: 525 mg, QD
     Route: 048
     Dates: start: 20100423
  20. CLOZAPINE [Suspect]
     Dosage: 600 mg, QD
     Route: 048
     Dates: start: 20100426
  21. CLOZAPINE [Suspect]
     Dosage: 600 mg, QD
     Dates: start: 20100514
  22. BLONANSERIN [Concomitant]
     Dosage: 24 mg, UNK
     Route: 048
     Dates: start: 20100301
  23. BLONANSERIN [Concomitant]
     Dosage: 8 mg, UNK
     Route: 048
     Dates: end: 20100304
  24. SEROQUEL [Concomitant]
     Dosage: UNK
     Route: 048
     Dates: start: 20100301, end: 20100414
  25. FLUNITRAZEPAM [Concomitant]
     Indication: SCHIZOPHRENIA, PARANOID TYPE
     Dosage: 2 mg, UNK
     Route: 048
  26. FLUNITRAZEPAM [Concomitant]
     Dosage: 2 mg, UNK
     Dates: end: 20120806
  27. NITRAZEPAM [Concomitant]
     Indication: SCHIZOPHRENIA, PARANOID TYPE
     Dosage: 10 mg, UNK
     Route: 048
     Dates: start: 20100419
  28. NITRAZEPAM [Concomitant]
     Dosage: 5 mg, UNK
     Route: 048
  29. NITRAZEPAM [Concomitant]
     Dosage: 10 mg, UNK
     Route: 048
  30. NITRAZEPAM [Concomitant]
     Dosage: 15 mg, UNK
     Route: 048
     Dates: end: 20100806
  31. BIPERIDEN HYDROCHLORIDE [Concomitant]
     Indication: SCHIZOPHRENIA, PARANOID TYPE
     Dosage: UNK
     Route: 048
     Dates: end: 20100302
  32. SENNOSIDE [Concomitant]
     Indication: CONSTIPATION
     Dosage: UNK
     Route: 048
     Dates: start: 20100902
  33. QUETIAPINE FUMARATE [Concomitant]
     Dosage: 200 mg, UNK
     Route: 048
  34. QUETIAPINE FUMARATE [Concomitant]
     Dosage: 550 mg, UNK
     Route: 048
  35. QUETIAPINE FUMARATE [Concomitant]
     Dosage: 475 mg, UNK
     Route: 048
  36. QUETIAPINE FUMARATE [Concomitant]
     Dosage: 400 mg, UNK
     Route: 048
  37. QUETIAPINE FUMARATE [Concomitant]
     Dosage: 350 mg, UNK
     Route: 048
  38. QUETIAPINE FUMARATE [Concomitant]
     Dosage: 300 mg, UNK
     Route: 048
  39. QUETIAPINE FUMARATE [Concomitant]
     Dosage: 250 mg, UNK
     Route: 048
  40. QUETIAPINE FUMARATE [Concomitant]
     Dosage: 200 mg, UNK
     Route: 048
  41. QUETIAPINE FUMARATE [Concomitant]
     Dosage: 150 mg, UNK
     Route: 048
  42. QUETIAPINE FUMARATE [Concomitant]
     Dosage: 100 mg, UNK
     Route: 048
  43. QUETIAPINE FUMARATE [Concomitant]
     Dosage: 50 mg, UNK
     Route: 048
     Dates: end: 20100424
  44. ARIPIPRAZOLE [Concomitant]
     Dosage: UNK
     Route: 048
  45. LAMOTRIGINE [Concomitant]
     Dosage: 200 mg, UNK

REACTIONS (8)
  - Suicide attempt [Recovered/Resolved]
  - Dyskinesia [Recovered/Resolved]
  - Electroencephalogram abnormal [Recovered/Resolved]
  - Hepatic function abnormal [Recovering/Resolving]
  - Inflammation [Unknown]
  - Pyrexia [Recovered/Resolved]
  - Salivary hypersecretion [Recovering/Resolving]
  - Tremor [Recovering/Resolving]
